FAERS Safety Report 6581292-X (Version None)
Quarter: 2010Q1

REPORT INFORMATION
  Report Type: 
  Country: None (occurrence: None)
  Receive Date: 20100203
  Receipt Date: 20100118
  Transmission Date: 20100710
  Serious: Yes (Other)
  Sender: FDA-Public Use
  Company Number: APP201000047

PATIENT
  Age: 46 Year
  Sex: Female
  Weight: 54 kg

DRUGS (2)
  1. FLUOROURACIL [Suspect]
     Indication: CHEMOTHERAPY
     Dosage: SEE IMAGE
     Route: 042
  2. CISPLATIN [Concomitant]

REACTIONS (16)
  - BLOOD CHOLESTEROL DECREASED [None]
  - BLOOD FOLATE DECREASED [None]
  - BLOOD POTASSIUM DECREASED [None]
  - BONE MARROW FAILURE [None]
  - CONFUSIONAL STATE [None]
  - DISORIENTATION [None]
  - DIZZINESS [None]
  - HEADACHE [None]
  - LETHARGY [None]
  - NEUTROPENIA [None]
  - NYSTAGMUS [None]
  - PROTEIN TOTAL DECREASED [None]
  - STOMATITIS [None]
  - VITAMIN B1 INCREASED [None]
  - VITAMIN B12 INCREASED [None]
  - WERNICKE'S ENCEPHALOPATHY [None]
